FAERS Safety Report 14292071 (Version 1)
Quarter: 2017Q4

REPORT INFORMATION
  Report Type: Spontaneous
  Country: US (occurrence: US)
  Receive Date: 20171215
  Receipt Date: 20171215
  Transmission Date: 20180321
  Serious: Yes (Hospitalization)
  Sender: FDA-Public Use
  Company Number: US-NOVOPROD-520291

PATIENT
  Age: 45 Year
  Sex: Male
  Weight: 103.86 kg

DRUGS (5)
  1. LEVEMIR [Suspect]
     Active Substance: INSULIN DETEMIR
     Indication: TYPE 2 DIABETES MELLITUS
     Dosage: 70 U, BID
     Route: 058
     Dates: start: 20161104, end: 201611
  2. LEVEMIR [Suspect]
     Active Substance: INSULIN DETEMIR
     Dosage: 70 U, BID
     Route: 058
     Dates: start: 201611, end: 201611
  3. KAZANO [Concomitant]
     Active Substance: ALOGLIPTIN BENZOATE\METFORMIN HYDROCHLORIDE
     Indication: TYPE 2 DIABETES MELLITUS
     Dosage: 12.5/1000MG BID
     Route: 048
  4. LEVEMIR [Suspect]
     Active Substance: INSULIN DETEMIR
     Dosage: 85 U AM AND 80 U PM
     Route: 058
     Dates: start: 201611
  5. NOVOLOG [Concomitant]
     Active Substance: INSULIN ASPART
     Indication: TYPE 2 DIABETES MELLITUS
     Dosage: 8 U WITH MEALS PLUS 1 UNIT FOR EVERY 50 POINTS THAT GLUCOSE IS OVER 200MG/DL
     Route: 058

REACTIONS (3)
  - Blood glucose increased [Recovering/Resolving]
  - Drug dose omission [Recovering/Resolving]
  - Wrong technique in device usage process [Recovering/Resolving]

NARRATIVE: CASE EVENT DATE: 201611
